FAERS Safety Report 8216134-X (Version None)
Quarter: 2012Q1

REPORT INFORMATION
  Report Type: 
  Country: None (occurrence: None)
  Receive Date: 20120316
  Receipt Date: 20120313
  Transmission Date: 20120608
  Serious: Yes (Hospitalization)
  Sender: FDA-Public Use
  Company Number: US-GLAXOSMITHKLINE-A0835771A

PATIENT
  Age: 49 Year
  Sex: Female

DRUGS (1)
  1. AVANDIA [Suspect]
     Indication: TYPE 2 DIABETES MELLITUS
     Dosage: 4MG TWICE PER DAY
     Route: 048
     Dates: start: 20010101, end: 20021201

REACTIONS (5)
  - WEIGHT INCREASED [None]
  - ASTHENIA [None]
  - RED BLOOD CELL COUNT DECREASED [None]
  - ANAEMIA [None]
  - CARDIAC FAILURE CONGESTIVE [None]
